FAERS Safety Report 9259181 (Version 2)
Quarter: 2013Q3

REPORT INFORMATION
  Report Type: Report from Study
  Country: US (occurrence: US)
  Receive Date: 20130426
  Receipt Date: 20130705
  Transmission Date: 20140515
  Serious: Yes (Other)
  Sender: FDA-Public Use
  Company Number: US-ABBOTT-13P-163-1079038-00

PATIENT
  Sex: Female
  Weight: 65.38 kg

DRUGS (13)
  1. HUMIRA [Suspect]
     Indication: PSORIASIS
     Route: 058
     Dates: start: 20100923
  2. METOPROLOL [Concomitant]
     Indication: PRODUCT USED FOR UNKNOWN INDICATION
  3. CELEXA [Concomitant]
     Indication: DEPRESSION
  4. CELEXA [Concomitant]
     Indication: FATIGUE
  5. TRAMADOL [Concomitant]
     Indication: FIBROMYALGIA
  6. RECLAST [Concomitant]
     Indication: OSTEOPOROSIS
     Route: 042
  7. LIBRAX [Concomitant]
     Indication: ABDOMINAL DISCOMFORT
  8. PRILOSEC [Concomitant]
     Indication: GASTROOESOPHAGEAL REFLUX DISEASE
  9. RANITIDINE [Concomitant]
     Indication: GASTRIC DISORDER
  10. ZOLPIDEM [Concomitant]
     Indication: SLEEP DISORDER
  11. ANTIFUNGAL CREAM [Concomitant]
     Indication: PRODUCT USED FOR UNKNOWN INDICATION
  12. CORTISONE CREAM [Concomitant]
     Indication: PRODUCT USED FOR UNKNOWN INDICATION
  13. NEOSPORIN [Concomitant]
     Indication: PRODUCT USED FOR UNKNOWN INDICATION

REACTIONS (4)
  - Hernia [Not Recovered/Not Resolved]
  - Gastrooesophageal reflux disease [Unknown]
  - Pain [Unknown]
  - Dermatitis contact [Unknown]
